FAERS Safety Report 9295360 (Version 7)
Quarter: 2014Q1

REPORT INFORMATION
  Report Type: Report from Study
  Country: US (occurrence: US)
  Receive Date: 20130517
  Receipt Date: 20140224
  Transmission Date: 20141002
  Serious: Yes (Death, Other)
  Sender: FDA-Public Use
  Company Number: PHEH2013US010131

PATIENT
  Age: 36 Year
  Sex: Female
  Weight: 122.45 kg

DRUGS (1)
  1. GILENYA [Suspect]
     Indication: MULTIPLE SCLEROSIS
     Dosage: 0.5 MG, QD
     Route: 048
     Dates: start: 20130326

REACTIONS (7)
  - Death [Fatal]
  - Ventricular fibrillation [Fatal]
  - Cardiac arrest [Fatal]
  - Pyelonephritis chronic [Fatal]
  - Ventricular extrasystoles [Unknown]
  - Central nervous system lesion [Unknown]
  - Nausea [Unknown]
